FAERS Safety Report 8943933 (Version 1)
Quarter: 2012Q4

REPORT INFORMATION
  Report Type: 
  Country: US (occurrence: US)
  Receive Date: 20121204
  Receipt Date: 20121204
  Transmission Date: 20130627
  Serious: No
  Sender: FDA-Public Use
  Company Number: US-VERTEX PHARMACEUTICALS INC.-2012-025522

PATIENT
  Sex: Female
  Weight: 82 kg

DRUGS (5)
  1. INCIVEK [Suspect]
     Indication: HEPATITIS C
     Dosage: 750 mg, tid
     Route: 048
     Dates: start: 201210
  2. RIBAVIRIN [Suspect]
     Indication: HEPATITIS C
     Dosage: 600 mg, bid
     Dates: start: 201210, end: 201211
  3. RIBAVIRIN [Suspect]
     Dosage: 600 mg, qd
     Dates: start: 201211
  4. PEGASYS [Suspect]
     Indication: HEPATITIS C
     Dosage: 180 ?g, qw
     Route: 058
     Dates: start: 201210, end: 201211
  5. PEGASYS [Suspect]
     Dosage: 135 ?g, qw
     Route: 058
     Dates: start: 201211

REACTIONS (1)
  - White blood cell count decreased [Not Recovered/Not Resolved]
